FAERS Safety Report 25960654 (Version 1)
Quarter: 2025Q4

REPORT INFORMATION
  Report Type: Spontaneous
  Country: GB (occurrence: GB)
  Receive Date: 20251027
  Receipt Date: 20251027
  Transmission Date: 20260118
  Serious: Yes (Other)
  Sender: DR REDDYS
  Company Number: None

PATIENT
  Age: 80 Year
  Sex: Male
  Weight: 81 kg

DRUGS (8)
  1. CLARITHROMYCIN [Suspect]
     Active Substance: CLARITHROMYCIN
     Indication: Product used for unknown indication
     Dosage: TAKE ONE TABLET TWICE A DAY FOR 7 DAYS, TO TREA...
     Dates: start: 20251013
  2. FLUCLOXACILLIN [Concomitant]
     Active Substance: FLUCLOXACILLIN
     Indication: Ill-defined disorder
     Dosage: TAKE ONE CAPSULE FOUR TIMES A DAY FOR 5 DAYS
     Dates: start: 20251008, end: 20251013
  3. MEDIHONEY ANTIBACTERIAL [Concomitant]
     Indication: Ill-defined disorder
     Dosage: USE AS DIRECTED
     Dates: start: 20251013
  4. DOVONEX [Concomitant]
     Active Substance: CALCIPOTRIENE
     Indication: Ill-defined disorder
     Dosage: USE TWICE DAILY
     Dates: start: 20231110
  5. ASPIRIN [Concomitant]
     Active Substance: ASPIRIN
     Indication: Ill-defined disorder
     Dosage: ONE TO BE TAKEN DAILY
     Dates: start: 20240604
  6. ATORVASTATIN [Concomitant]
     Active Substance: ATORVASTATIN
     Indication: Prophylaxis
     Dosage: TAKE ONE DAILY TO REDUCE CARDIOVASCULAR RISK
     Dates: start: 20250521
  7. RAMIPRIL [Concomitant]
     Active Substance: RAMIPRIL
     Indication: Ill-defined disorder
     Dosage: ONE TO BE TAKEN DAILY
     Dates: start: 20250527
  8. TIMOLOL [Concomitant]
     Active Substance: TIMOLOL
     Indication: Ill-defined disorder
     Dosage: PUT ONE DROP INTO THE AFFECTED EYE(S) ONCE DAILY
     Dates: start: 20250603

REACTIONS (2)
  - Lip swelling [Recovering/Resolving]
  - Pharyngeal swelling [Unknown]
